FAERS Safety Report 6188488-X (Version None)
Quarter: 2009Q2

REPORT INFORMATION
  Report Type: 
  Country: None (occurrence: None)
  Receive Date: 20090513
  Receipt Date: 20090507
  Transmission Date: 20091009
  Serious: No
  Sender: FDA-Public Use
  Company Number: JP-AVENTIS-200911115JP

PATIENT
  Age: 65 Year
  Sex: Female

DRUGS (1)
  1. ALLEGRA [Suspect]
     Route: 048
     Dates: start: 20090402, end: 20090404

REACTIONS (4)
  - ERYTHEMA [None]
  - LOCAL SWELLING [None]
  - OFF LABEL USE [None]
  - SWELLING FACE [None]
